FAERS Safety Report 17475600 (Version 1)
Quarter: 2020Q1

REPORT INFORMATION
  Report Type: Spontaneous
  Country: US (occurrence: US)
  Receive Date: 20200228
  Receipt Date: 20200228
  Transmission Date: 20200409
  Serious: No
  Sender: FDA-Public Use
  Company Number: US-PFIZER INC-2020089962

PATIENT
  Age: 51 Year
  Sex: Male
  Weight: 93.88 kg

DRUGS (2)
  1. INLYTA [Suspect]
     Active Substance: AXITINIB
     Dosage: UNK
  2. LENVIMA [Concomitant]
     Active Substance: LENVATINIB
     Indication: RENAL CANCER METASTATIC
     Dosage: 14 MG, DAILY
     Route: 048
     Dates: start: 20190501, end: 20191101

REACTIONS (1)
  - Somnolence [Unknown]
